FAERS Safety Report 8785506 (Version 3)
Quarter: 2012Q4

REPORT INFORMATION
  Report Type: 
  Country: US (occurrence: US)
  Receive Date: 20120914
  Receipt Date: 20121016
  Transmission Date: 20130627
  Serious: Yes (Other)
  Sender: FDA-Public Use
  Company Number: US-BAYER-2012-093528

PATIENT
  Age: 38 Year
  Sex: Female

DRUGS (2)
  1. MIRENA [Suspect]
     Indication: MENORRHAGIA
     Dosage: UNK
     Dates: start: 201112, end: 20120806
  2. MIRENA [Suspect]
     Indication: CONTRACEPTION

REACTIONS (2)
  - Device expulsion [None]
  - Vaginal haemorrhage [None]
